FAERS Safety Report 4297363-7 (Version None)
Quarter: 2004Q1

REPORT INFORMATION
  Report Type: 
  Country: None (occurrence: None)
  Receive Date: 20040212
  Receipt Date: 20030923
  Transmission Date: 20041129
  Serious: Yes (Other)
  Sender: FDA-Public Use
  Company Number: A03200302231

PATIENT

DRUGS (1)
  1. AMBIEN [Suspect]
     Dosage: ORAL
     Route: 048

REACTIONS (3)
  - HALLUCINATION [None]
  - NIGHTMARE [None]
  - SLEEP WALKING [None]
